FAERS Safety Report 10024975 (Version 4)
Quarter: 2015Q2

REPORT INFORMATION
  Report Type: Spontaneous
  Country: US (occurrence: US)
  Receive Date: 20140320
  Receipt Date: 20150617
  Transmission Date: 20150821
  Serious: Yes (Hospitalization, Other)
  Sender: FDA-Public Use
  Company Number: US-009507513-1403USA007772

PATIENT
  Sex: Female
  Weight: 65.31 kg

DRUGS (2)
  1. ALENDRONATE SODIUM. [Suspect]
     Active Substance: ALENDRONATE SODIUM
     Indication: OSTEOPOROSIS
     Dosage: 70 MG, QW
     Route: 048
     Dates: start: 2008, end: 20120215
  2. FOSAMAX [Suspect]
     Active Substance: ALENDRONATE SODIUM
     Indication: OSTEOPOROSIS
     Dosage: 70 MG, QW
     Route: 048
     Dates: start: 200106, end: 2008

REACTIONS (16)
  - Bursitis [Unknown]
  - Plantar fascial fibromatosis [Unknown]
  - Tendonitis [Unknown]
  - Postoperative fever [Unknown]
  - Open reduction of fracture [Unknown]
  - Ankle fracture [Unknown]
  - Femur fracture [Recovered/Resolved]
  - Bone graft [Unknown]
  - Tibia fracture [Unknown]
  - Fracture nonunion [Recovered/Resolved]
  - Hypertension [Unknown]
  - Open reduction of fracture [Unknown]
  - Hypokalaemia [Unknown]
  - Anaemia postoperative [Unknown]
  - Dyslipidaemia [Unknown]
  - Iron deficiency anaemia [Unknown]

NARRATIVE: CASE EVENT DATE: 2001
